FAERS Safety Report 10945960 (Version 2)
Quarter: 2015Q2

REPORT INFORMATION
  Report Type: Report from Study
  Country: US (occurrence: US)
  Receive Date: 20150323
  Receipt Date: 20150406
  Transmission Date: 20150821
  Serious: Yes (Hospitalization, Other)
  Sender: FDA-Public Use
  Company Number: US-PFIZER INC-2015097266

PATIENT
  Age: 47 Year
  Sex: Male
  Weight: 74.83 kg

DRUGS (4)
  1. KEPPRA [Suspect]
     Active Substance: LEVETIRACETAM
     Indication: SEIZURE
     Dosage: UNK
  2. DILANTIN [Suspect]
     Active Substance: PHENYTOIN
     Indication: SEIZURE
     Dosage: UNK
  3. DEPAKOTE ER [Suspect]
     Active Substance: DIVALPROEX SODIUM
     Indication: TEMPORAL LOBE EPILEPSY
     Dosage: 500 MG, 2X/DAY
     Dates: start: 1999, end: 2009
  4. LAMICTAL [Suspect]
     Active Substance: LAMOTRIGINE
     Indication: SEIZURE
     Dosage: UNK

REACTIONS (15)
  - Blood creatinine increased [Recovered/Resolved]
  - Apparent death [Unknown]
  - Haemorrhoids [Unknown]
  - Bladder disorder [Unknown]
  - Prostatomegaly [Unknown]
  - Tremor [Recovered/Resolved]
  - Glare [Unknown]
  - Haematuria [Recovered/Resolved]
  - Oedema peripheral [Unknown]
  - Drug ineffective [Unknown]
  - Dizziness [Unknown]
  - Aphonia [Unknown]
  - Bladder disorder [Recovered/Resolved]
  - Anaemia [Recovered/Resolved]
  - Oropharyngeal pain [Unknown]

NARRATIVE: CASE EVENT DATE: 2000
